FAERS Safety Report 8283539-0 (Version None)
Quarter: 2012Q2

REPORT INFORMATION
  Report Type: 
  Country: None (occurrence: None)
  Receive Date: 20120413
  Receipt Date: 20120405
  Transmission Date: 20120825
  Serious: Yes (Hospitalization)
  Sender: FDA-Public Use
  Company Number: US-BIOMARINP-002465

PATIENT
  Sex: Female
  Weight: 99 kg

DRUGS (6)
  1. IMODIUM [Concomitant]
     Indication: ABDOMINAL DISCOMFORT
  2. VITAMIN D SUPPLEMENT [Concomitant]
     Indication: VITAMIN D DEFICIENCY
  3. IMODIUM [Concomitant]
     Indication: DIARRHOEA
  4. PHLEXY-10 [Concomitant]
     Indication: PRODUCT USED FOR UNKNOWN INDICATION
  5. KUVAN [Suspect]
     Indication: PHENYLKETONURIA
     Route: 048
     Dates: start: 20091001, end: 20091101
  6. KUVAN [Suspect]
     Route: 048
     Dates: start: 20091101

REACTIONS (1)
  - CHOLELITHIASIS [None]
